FAERS Safety Report 9358589 (Version 1)
Quarter: 2013Q2

REPORT INFORMATION
  Report Type: Spontaneous
  Country: US (occurrence: US)
  Receive Date: 20130620
  Receipt Date: 20130620
  Transmission Date: 20140414
  Serious: Yes (Hospitalization)
  Sender: FDA-Public Use
  Company Number: US-US-EMD SERONO, INC.-7025036

PATIENT
  Age: 55 Year
  Sex: Male

DRUGS (3)
  1. REBIF [Suspect]
     Indication: MULTIPLE SCLEROSIS
     Route: 058
     Dates: start: 20080825, end: 20100816
  2. REBIF [Suspect]
     Route: 058
     Dates: start: 20100816, end: 20100901
  3. REBIF [Suspect]
     Route: 058
     Dates: start: 20100901

REACTIONS (2)
  - Multiple sclerosis relapse [Recovered/Resolved]
  - Pain [Not Recovered/Not Resolved]
